FAERS Safety Report 18963884 (Version 2)
Quarter: 2023Q1

REPORT INFORMATION
  Report Type: Spontaneous
  Country: US (occurrence: US)
  Receive Date: 20210303
  Receipt Date: 20230307
  Transmission Date: 20230417
  Serious: No
  Sender: FDA-Public Use
  Company Number: US-AMNEAL PHARMACEUTICALS-2019-IPXL-01657

PATIENT
  Sex: Female
  Weight: 69 kg

DRUGS (3)
  1. RYTARY [Suspect]
     Active Substance: CARBIDOPA\LEVODOPA
     Indication: Product used for unknown indication
     Dosage: 3 DOSAGE FORM, QID
     Route: 048
  2. RYTARY [Suspect]
     Active Substance: CARBIDOPA\LEVODOPA
     Dosage: 4 DOSAGE FORM, QID
     Route: 048
  3. RYTARY [Suspect]
     Active Substance: CARBIDOPA\LEVODOPA
     Dosage: TAKE 4 CAPSULES AT 8AM 4PM AND 8PM AND TAKE 3 CAPSULES BY MOUTH AT 12 PM
     Route: 048

REACTIONS (3)
  - Asthenia [Recovering/Resolving]
  - Insomnia [Recovering/Resolving]
  - Gait disturbance [Unknown]
